FAERS Safety Report 4742495-X (Version None)
Quarter: 2005Q3

REPORT INFORMATION
  Report Type: 
  Country: None (occurrence: None)
  Receive Date: 20050808
  Receipt Date: 20050725
  Transmission Date: 20060218
  Serious: Yes (Other)
  Sender: FDA-Public Use
  Company Number: US_0411107755

PATIENT
  Age: 41 Year
  Sex: Female
  Weight: 75 kg

DRUGS (36)
  1. ZYPREXA [Suspect]
     Dosage: 10 MG
     Dates: start: 20000620, end: 20030306
  2. CITALOPRAM HYDROBROMIDE [Concomitant]
  3. VENLAFAXINE [Concomitant]
  4. TOPAMAX [Concomitant]
  5. LEXAPRO [Concomitant]
  6. CLONIDINE [Concomitant]
  7. BUSPAR [Concomitant]
  8. TRAZODONE HCL [Concomitant]
  9. PROMETRIUM [Concomitant]
  10. ESTRADIOL [Concomitant]
  11. ZANTAC [Concomitant]
  12. FUROSEMIDE   /00032601/ [Concomitant]
  13. TEMAZEPAM [Concomitant]
  14. LIPITOR [Concomitant]
  15. ZIAC [Concomitant]
  16. COZAAR [Concomitant]
  17. ALBUTEROL [Concomitant]
  18. PROZAC [Concomitant]
  19. METHYLPREDNISOLONE [Concomitant]
  20. PREMARIN [Concomitant]
  21. SPIRONOLACTONE [Concomitant]
  22. NEURONTIN [Concomitant]
  23. IBUPROFEN [Concomitant]
  24. CARBAMAZEPINE [Concomitant]
  25. ATENOLOL W/CHLORTALIDONE [Concomitant]
  26. SEROZONE (NEFAZODONE HYDROCHLORIDE) [Concomitant]
  27. ZITHROMAX [Concomitant]
  28. AMBIEN [Concomitant]
  29. APAP  W/HYDROCODONE [Concomitant]
  30. DEMADEX [Concomitant]
  31. KETOPROFEN [Concomitant]
  32. FUROSEMIDE (FUROSEMIDE /00032601/ [Concomitant]
  33. PROMETHAZINE [Concomitant]
  34. ACYCLOVIR [Concomitant]
  35. KLOR-CON [Concomitant]
  36. GUAIFENESIN PSE [Concomitant]

REACTIONS (9)
  - BLOOD CHOLESTEROL INCREASED [None]
  - BLOOD TRIGLYCERIDES INCREASED [None]
  - CHEST PAIN [None]
  - DIABETES MELLITUS INADEQUATE CONTROL [None]
  - DYSPNOEA [None]
  - ELECTROCARDIOGRAM QT PROLONGED [None]
  - GLYCOSYLATED HAEMOGLOBIN INCREASED [None]
  - HYPERGLYCAEMIA [None]
  - PAIN [None]
